FAERS Safety Report 9791314 (Version 3)
Quarter: 2016Q3

REPORT INFORMATION
  Report Type: Report from Study
  Country: FR (occurrence: FR)
  Receive Date: 20140101
  Receipt Date: 20160919
  Transmission Date: 20161109
  Serious: Yes (Other)
  Sender: FDA-Public Use
  Company Number: FR-ROCHE-670296

PATIENT

DRUGS (1)
  1. ENFUVIRTIDE [Suspect]
     Active Substance: ENFUVIRTIDE
     Indication: HIV INFECTION
     Route: 058

REACTIONS (6)
  - Hypokalaemia [Unknown]
  - Coronary artery disease [Unknown]
  - Injection site reaction [Unknown]
  - Gastrointestinal toxicity [Unknown]
  - Respiratory symptom [Unknown]
  - Psychiatric symptom [Unknown]
